FAERS Safety Report 9616986 (Version 3)
Quarter: 2013Q4

REPORT INFORMATION
  Report Type: Spontaneous
  Country: ES (occurrence: ES)
  Receive Date: 20131011
  Receipt Date: 20131114
  Transmission Date: 20140711
  Serious: Yes (Hospitalization, Other)
  Sender: FDA-Public Use
  Company Number: ES-ACTELION-A-CH2013-89570

PATIENT
  Age: 11 Year
  Sex: Female

DRUGS (4)
  1. TRACLEER [Suspect]
     Indication: PULMONARY ARTERIAL PRESSURE INCREASED
     Dosage: 62.5 MG, BID
     Route: 048
     Dates: start: 201309
  2. TRACLEER [Suspect]
     Dosage: 32.25 MG, BID
     Route: 048
     Dates: start: 201307
  3. TRACLEER [Suspect]
     Dosage: 32.25 MG, BID
     Route: 048
  4. HYDROCHLOROTHIAZIDE [Concomitant]
     Indication: PULMONARY ARTERIAL HYPERTENSION
     Dosage: UNK

REACTIONS (2)
  - Cardiac operation [Unknown]
  - Stevens-Johnson syndrome [Recovered/Resolved]
